FAERS Safety Report 8254947-9 (Version None)
Quarter: 2012Q2

REPORT INFORMATION
  Report Type: 
  Country: None (occurrence: None)
  Receive Date: 20120403
  Receipt Date: 20120330
  Transmission Date: 20120825
  Serious: No
  Sender: FDA-Public Use
  Company Number: US-PFIZER INC-2012081855

PATIENT
  Sex: Male

DRUGS (1)
  1. GEODON [Suspect]
     Dosage: 40 MG, 2X/DAY
     Route: 048
     Dates: start: 20120101

REACTIONS (5)
  - ASTHENIA [None]
  - NAUSEA [None]
  - FATIGUE [None]
  - SOMNOLENCE [None]
  - LOSS OF LIBIDO [None]
